FAERS Safety Report 4645738-6 (Version None)
Quarter: 2005Q2

REPORT INFORMATION
  Report Type: 
  Country: None (occurrence: None)
  Receive Date: 20050425
  Receipt Date: 20050425
  Transmission Date: 20051028
  Serious: Yes (Hospitalization, Other)
  Sender: FDA-Public Use
  Company Number: None

PATIENT
  Sex: Female
  Weight: 65 kg

DRUGS (9)
  1. CYTARABINE [Suspect]
     Dosage: 30-70MG, BASED ON AGE, IT ON DAY 1
     Route: 037
  2. METHOTREXATE [Suspect]
     Dosage: 8-12MG, BASED ON AGE, IT ON DAYS 8 AND 29
     Route: 037
  3. VINCRISTINE [Suspect]
     Dosage: 1.5 MG/M2 IVP ON DAYS 1,8,15,22
     Route: 042
  4. DEXAMETHASONE [Suspect]
     Dosage: 5MG/M2 BID ON DAYS 1-10 WITH TAPER DAYS 11-14
  5. IDARUBICIN HCL [Suspect]
     Dosage: 10 MG/M2 IV OVER 6 HR QD ON DAYS 1+2
     Route: 042
  6. ETOPOSIDE [Suspect]
     Dosage: 100MG/M2 IV OVER 2 HR QD ON DAYS 1-5
     Route: 042
  7. CYCLOPHOSPHAMIDE [Suspect]
     Dosage: 440 MG/M2 IV OVER 30 MIN QD ON DAYS 1-5
     Route: 042
  8. NEUPOGEN [Suspect]
     Dosage: 5 MCG/KG SC QD STARTING ON DAY 6 UNTIL ANC}1500/MCL FOR 2 DAYS
     Route: 058
  9. LEUCOVORIN CALCIUM [Suspect]
     Dosage: 15 MG/M2 IV Q 6 HOURS X 3 DOSES
     Route: 042

REACTIONS (17)
  - APHAGIA [None]
  - ASTHENIA [None]
  - CONFUSIONAL STATE [None]
  - CONVULSION [None]
  - DEHYDRATION [None]
  - GAZE PALSY [None]
  - HAEMORRHAGE [None]
  - HEADACHE [None]
  - HYPOAESTHESIA [None]
  - MOTOR DYSFUNCTION [None]
  - NAUSEA [None]
  - SPEECH DISORDER [None]
  - SUPERIOR SAGITTAL SINUS THROMBOSIS [None]
  - TRISMUS [None]
  - VENOUS PRESSURE INCREASED [None]
  - VOMITING [None]
  - WEIGHT DECREASED [None]
